FAERS Safety Report 21922593 (Version 7)
Quarter: 2023Q2

REPORT INFORMATION
  Report Type: Report from Study
  Country: CO (occurrence: CO)
  Receive Date: 20230128
  Receipt Date: 20230513
  Transmission Date: 20230721
  Serious: Yes (Hospitalization, Other)
  Sender: FDA-Public Use
  Company Number: CO-002147023-NVSC2023CO018554

PATIENT
  Age: 51 Year
  Sex: Male

DRUGS (17)
  1. ELTROMBOPAG OLAMINE [Suspect]
     Active Substance: ELTROMBOPAG OLAMINE
     Indication: Immune thrombocytopenia
     Dosage: 50 MG, QD
     Route: 048
     Dates: start: 20230113
  2. ELTROMBOPAG OLAMINE [Suspect]
     Active Substance: ELTROMBOPAG OLAMINE
     Dosage: 100 MG, QD (2 TABLETS)
     Route: 048
     Dates: start: 20230207
  3. ELTROMBOPAG OLAMINE [Suspect]
     Active Substance: ELTROMBOPAG OLAMINE
     Dosage: 100 MG, QD
     Route: 048
  4. AZATHIOPRINE [Concomitant]
     Active Substance: AZATHIOPRINE
     Indication: Product used for unknown indication
     Dosage: UNK, Q8H
     Route: 048
  5. AZATHIOPRINE [Concomitant]
     Active Substance: AZATHIOPRINE
     Dosage: 50 MG, Q8H (90 (NINETY) TAKE 1 TABLET ORALLY EVERY 8 HOURS)
     Route: 065
  6. AZATHIOPRINE [Concomitant]
     Active Substance: AZATHIOPRINE
     Dosage: 50 MG, QD
     Route: 065
     Dates: start: 20230112
  7. DEXAMETHASONE [Concomitant]
     Active Substance: DEXAMETHASONE
     Indication: Product used for unknown indication
     Dosage: 40 MG, QD  (D2/D4)
     Route: 042
  8. DEXAMETHASONE [Concomitant]
     Active Substance: DEXAMETHASONE
     Dosage: 4 MG, Q24H (TAKE 10 TABLETS ORALLY EVERY 24 HOURS)
     Route: 048
  9. DEXAMETHASONE [Concomitant]
     Active Substance: DEXAMETHASONE
     Dosage: 40 MG (MULTIPLY 4 DAYS)
     Route: 065
     Dates: start: 202210
  10. DEXAMETHASONE [Concomitant]
     Active Substance: DEXAMETHASONE
     Dosage: 40 MG (4 DAYS)
     Route: 065
     Dates: start: 20230110
  11. IMMUNOGLOBULIN [Concomitant]
     Indication: Product used for unknown indication
     Dosage: UNK
     Route: 065
  12. ROSUVASTATIN [Concomitant]
     Active Substance: ROSUVASTATIN
     Indication: Product used for unknown indication
     Dosage: 10 MG (0-0-2)
     Route: 065
  13. PREDNISONE [Concomitant]
     Active Substance: PREDNISONE
     Indication: Product used for unknown indication
     Dosage: 50 MG, Q24H (TAKE HALF TABLET (15 TABLET))
     Route: 048
  14. PREDNISONE [Concomitant]
     Active Substance: PREDNISONE
     Dosage: 100 MG
     Route: 065
     Dates: start: 20221002
  15. LINAGLIPTIN [Concomitant]
     Active Substance: LINAGLIPTIN
     Indication: Product used for unknown indication
     Dosage: 5 MG, Q24H (TAKE 1 TABLET ORALLY EVERY 24 HOURS (30 TABLET)
     Route: 048
  16. PREDNISOLONE [Concomitant]
     Active Substance: PREDNISOLONE
     Indication: Product used for unknown indication
     Dosage: 50 MG, QD (1 TABLET)
     Route: 065
     Dates: start: 20221014
  17. PREDNISOLONE [Concomitant]
     Active Substance: PREDNISOLONE
     Dosage: 50 MG, QD (2 TABLET)
     Route: 065
     Dates: start: 20221202

REACTIONS (19)
  - Platelet count decreased [Not Recovered/Not Resolved]
  - Joint effusion [Unknown]
  - Oropharyngeal candidiasis [Unknown]
  - Temperature regulation disorder [Unknown]
  - Urinary tract disorder [Recovered/Resolved]
  - Pyrexia [Unknown]
  - Burning sensation [Unknown]
  - Erythema [Unknown]
  - Inflammation [Unknown]
  - Arthralgia [Unknown]
  - Haemorrhage [Unknown]
  - Purpura [Unknown]
  - Ecchymosis [Unknown]
  - Petechiae [Unknown]
  - Contusion [Unknown]
  - Blood lactate dehydrogenase increased [Unknown]
  - Gout [Unknown]
  - Product use issue [Unknown]
  - Drug ineffective [Unknown]

NARRATIVE: CASE EVENT DATE: 20230117
